FAERS Safety Report 4952254-0 (Version None)
Quarter: 2006Q1

REPORT INFORMATION
  Report Type: 
  Country: None (occurrence: None)
  Receive Date: 20060315
  Receipt Date: 20060228
  Transmission Date: 20060701
  Serious: Yes (Hospitalization)
  Sender: FDA-Public Use
  Company Number: WSDF_00068

PATIENT
  Age: 12 Year
  Sex: Male
  Weight: 38.5557 kg

DRUGS (2)
  1. WINRHO SDF [Suspect]
     Indication: IDIOPATHIC THROMBOCYTOPENIC PURPURA
     Dosage: 50 MCG/KG ONCE IV
     Route: 042
     Dates: start: 19980303, end: 19980303
  2. METHYLPREDNISOLONE [Concomitant]

REACTIONS (30)
  - ASTHENIA [None]
  - AUTOIMMUNE DISORDER [None]
  - BLOOD PRESSURE DIASTOLIC DECREASED [None]
  - CHROMATURIA [None]
  - CONJUNCTIVAL HAEMORRHAGE [None]
  - COOMBS DIRECT TEST POSITIVE [None]
  - DISSEMINATED INTRAVASCULAR COAGULATION [None]
  - DIZZINESS [None]
  - ECCHYMOSIS [None]
  - EPISTAXIS [None]
  - EXTRAMEDULLARY HAEMOPOIESIS [None]
  - EXTRAVASCULAR HAEMOLYSIS [None]
  - GASTROINTESTINAL HAEMORRHAGE [None]
  - HAEMATURIA [None]
  - HAEMOLYSIS [None]
  - HAEMOLYTIC ANAEMIA [None]
  - HAEMORRHAGE [None]
  - HEART RATE INCREASED [None]
  - HEPATIC FUNCTION ABNORMAL [None]
  - HEPATOMEGALY [None]
  - HYPOALBUMINAEMIA [None]
  - HYPONATRAEMIA [None]
  - LEUKOCYTOSIS [None]
  - PALLOR [None]
  - PETECHIAE [None]
  - RASH [None]
  - RESPIRATORY RATE INCREASED [None]
  - RETICULOCYTE COUNT INCREASED [None]
  - RETINAL HAEMORRHAGE [None]
  - THROMBOCYTOPENIA [None]
